FAERS Safety Report 6921993-4 (Version None)
Quarter: 2010Q3

REPORT INFORMATION
  Report Type: 
  Country: None (occurrence: None)
  Receive Date: 20100812
  Receipt Date: 20100105
  Transmission Date: 20110219
  Serious: Yes (Death, Life-Threatening)
  Sender: FDA-Public Use
  Company Number: FR-NAPPMUNDI-GBR-2004-0001306

PATIENT
  Sex: Female

DRUGS (7)
  1. CODE BROKEN OXYCODONE INJECT. 1 MG/ML [Suspect]
     Indication: CANCER PAIN
     Route: 042
     Dates: start: 20040917, end: 20040924
  2. NORADRENALINE                      /00127501/ [Concomitant]
     Indication: HYPOTENSION
     Dosage: .28 UNK, UNK
     Route: 042
  3. MIDAZOLAM HCL [Concomitant]
  4. MOPRAL                             /00661201/ [Concomitant]
     Dosage: 1 UNK, DAILY
     Route: 065
  5. MOPRAL                             /00661201/ [Concomitant]
     Dosage: 40 MG, DAILY
     Route: 065
     Dates: start: 20041014
  6. OFLOXACIN [Concomitant]
     Dosage: 200 UNK, BID
  7. CLAFORAN                           /00497602/ [Concomitant]
     Dosage: 1 UNIT, TID

REACTIONS (6)
  - ALTERED STATE OF CONSCIOUSNESS [None]
  - BLOOD PRESSURE DECREASED [None]
  - FRONTOTEMPORAL DEMENTIA [None]
  - HYPOTENSION [None]
  - SEPSIS [None]
  - SHOCK HAEMORRHAGIC [None]
